FAERS Safety Report 11887460 (Version 2)
Quarter: 2016Q1

REPORT INFORMATION
  Report Type: Spontaneous
  Country: JP (occurrence: JP)
  Receive Date: 20160105
  Receipt Date: 20160129
  Transmission Date: 20160526
  Serious: Yes (Hospitalization, Other)
  Sender: FDA-Public Use
  Company Number: JP-ROCHE-1663533

PATIENT
  Age: 51 Year
  Sex: Male

DRUGS (7)
  1. CARNACULIN [Concomitant]
     Active Substance: KALLIDINOGENASE
     Route: 065
     Dates: start: 20140628
  2. LUCENTIS [Suspect]
     Active Substance: RANIBIZUMAB
     Route: 050
     Dates: start: 20140418
  3. LUCENTIS [Suspect]
     Active Substance: RANIBIZUMAB
     Route: 050
     Dates: start: 20150521, end: 20150521
  4. VEGAMOX [Concomitant]
     Active Substance: MOXIFLOXACIN HYDROCHLORIDE
     Route: 065
     Dates: start: 20141215, end: 20141221
  5. VEGAMOX [Concomitant]
     Active Substance: MOXIFLOXACIN HYDROCHLORIDE
     Route: 065
     Dates: start: 20150518, end: 20150524
  6. LUCENTIS [Suspect]
     Active Substance: RANIBIZUMAB
     Indication: DIABETIC RETINAL OEDEMA
     Dosage: ON AN UNKNOWN DATE, THERAPY WITH RANIBIZUMAB STOPPED
     Route: 050
     Dates: start: 201406
  7. VEGAMOX [Concomitant]
     Active Substance: MOXIFLOXACIN HYDROCHLORIDE
     Route: 065
     Dates: start: 20150421, end: 20150427

REACTIONS (7)
  - Diabetic retinal oedema [Unknown]
  - Vitreous floaters [Unknown]
  - Retinal aneurysm [Unknown]
  - Product use issue [Unknown]
  - Retinal tear [Unknown]
  - Retinal detachment [Unknown]
  - Retinal ischaemia [Unknown]

NARRATIVE: CASE EVENT DATE: 20151107
